FAERS Safety Report 8675884 (Version 2)
Quarter: 2013Q2

REPORT INFORMATION
  Report Type: Spontaneous
  Country: MX (occurrence: MX)
  Receive Date: 20120720
  Receipt Date: 20130402
  Transmission Date: 20140414
  Serious: Yes (Hospitalization)
  Sender: FDA-Public Use
  Company Number: PHHY2012MX061775

PATIENT
  Age: 78 Year
  Sex: Female

DRUGS (3)
  1. ACLASTA [Suspect]
     Indication: OSTEOPOROSIS
     Dosage: 5 MG/100 ML PER YEAR
     Route: 042
     Dates: start: 20110901
  2. GABAPENTIN [Concomitant]
     Indication: PAIN IN EXTREMITY
     Dosage: 2 DF, PER DAY
     Dates: start: 2010
  3. TRIACOR [Concomitant]
     Indication: HYPERTENSION
     Dosage: 1 DF, PER DAY
     Dates: start: 2009

REACTIONS (2)
  - Sciatica [Recovered/Resolved]
  - Pain in extremity [Recovered/Resolved]
